FAERS Safety Report 22349514 (Version 1)
Quarter: 2023Q2

REPORT INFORMATION
  Report Type: Other
  Country: GB (occurrence: GB)
  Receive Date: 20230522
  Receipt Date: 20230522
  Transmission Date: 20230721
  Serious: Yes (Hospitalization, Other)
  Sender: FDA-Public Use
  Company Number: None

PATIENT
  Age: 78 Year
  Sex: Male
  Weight: 86 kg

DRUGS (7)
  1. NAPROXEN [Suspect]
     Active Substance: NAPROXEN
     Indication: Ill-defined disorder
     Dosage: UNK
     Route: 065
     Dates: start: 2016
  2. NAPROXEN [Suspect]
     Active Substance: NAPROXEN
     Dosage: UNK
     Route: 065
     Dates: start: 20230417
  3. BISOPROLOL [Concomitant]
     Active Substance: BISOPROLOL
     Indication: Ill-defined disorder
     Dosage: TAKE ONE DAILY
     Route: 065
     Dates: start: 20220425
  4. EDOXABAN [Concomitant]
     Active Substance: EDOXABAN
     Indication: Ill-defined disorder
     Dosage: TAKE ONE DAILY
     Route: 065
     Dates: start: 20221214
  5. FLUCLOXACILLIN [Concomitant]
     Active Substance: FLUCLOXACILLIN
     Indication: Ill-defined disorder
     Dosage: TAKE ONE 4 TIMES/DAY
     Route: 065
     Dates: start: 20230417
  6. HYDROXOCOBALAMIN [Concomitant]
     Active Substance: HYDROXOCOBALAMIN
     Indication: Ill-defined disorder
     Dosage: USE AS DIRECTED
     Route: 065
     Dates: start: 20230310
  7. NEFOPAM [Concomitant]
     Active Substance: NEFOPAM
     Indication: Ill-defined disorder
     Dosage: TAKE TWO 3 TIMES/DAY
     Route: 065
     Dates: start: 20220425

REACTIONS (1)
  - Renal impairment [Recovered/Resolved]

NARRATIVE: CASE EVENT DATE: 20230417
